FAERS Safety Report 17147275 (Version 1)
Quarter: 2019Q4

REPORT INFORMATION
  Report Type: Spontaneous
  Country: US (occurrence: US)
  Receive Date: 20191212
  Receipt Date: 20191212
  Transmission Date: 20200122
  Serious: Yes (Death, Other)
  Sender: FDA-Public Use
  Company Number: US-GLAXOSMITHKLINE-US2019GSK220732

PATIENT
  Sex: Male

DRUGS (3)
  1. PREVACID [Suspect]
     Active Substance: LANSOPRAZOLE
     Indication: PRODUCT USED FOR UNKNOWN INDICATION
     Dosage: UNK
     Route: 065
  2. PREVACID [Suspect]
     Active Substance: LANSOPRAZOLE
     Indication: PRODUCT USED FOR UNKNOWN INDICATION
     Dosage: UNK
     Route: 065
  3. OMEPRAZOLE. [Suspect]
     Active Substance: OMEPRAZOLE
     Indication: PRODUCT USED FOR UNKNOWN INDICATION
     Dosage: UNK
     Route: 065

REACTIONS (13)
  - Renal impairment [Unknown]
  - Renal injury [Unknown]
  - Hypertensive nephropathy [Unknown]
  - Diabetic nephropathy [Unknown]
  - Chronic kidney disease [Unknown]
  - End stage renal disease [Unknown]
  - Renal disorder [Unknown]
  - Renal failure [Unknown]
  - Polyuria [Unknown]
  - Dialysis [Unknown]
  - Dysuria [Unknown]
  - Death [Fatal]
  - Oliguria [Unknown]
